FAERS Safety Report 6156956-2 (Version None)
Quarter: 2009Q2

REPORT INFORMATION
  Report Type: 
  Country: None (occurrence: None)
  Receive Date: 20090416
  Receipt Date: 20090407
  Transmission Date: 20091009
  Serious: Yes (Life-Threatening)
  Sender: FDA-Public Use
  Company Number: B0568918A

PATIENT
  Sex: Male

DRUGS (9)
  1. ARIXTRA [Suspect]
     Indication: PAPILLOPHLEBITIS
     Dosage: 7.5MG PER DAY
     Route: 058
     Dates: start: 20090117, end: 20090120
  2. PLAVIX [Suspect]
     Dosage: 75MG UNKNOWN
     Route: 048
     Dates: end: 20090120
  3. ACEBUTOLOL [Concomitant]
     Indication: DRUG USE FOR UNKNOWN INDICATION
     Dosage: 200MG UNKNOWN
     Route: 065
  4. ALLOPURINOL [Concomitant]
     Indication: DRUG USE FOR UNKNOWN INDICATION
     Dosage: 200MG UNKNOWN
     Route: 065
  5. ENALAPRIL [Concomitant]
     Indication: DRUG USE FOR UNKNOWN INDICATION
     Dosage: 20MG UNKNOWN
     Route: 065
  6. FUROSEMIDE [Concomitant]
     Indication: DRUG USE FOR UNKNOWN INDICATION
     Dosage: 20MG UNKNOWN
     Route: 065
  7. PROPOFAN [Concomitant]
     Indication: DRUG USE FOR UNKNOWN INDICATION
     Route: 065
  8. MODOPAR [Concomitant]
     Indication: DRUG USE FOR UNKNOWN INDICATION
     Dosage: 62.5MG UNKNOWN
     Route: 065
  9. CLAMOXYL [Concomitant]
     Indication: ERYSIPELAS
     Route: 065
     Dates: start: 20090117

REACTIONS (8)
  - AORTIC ANEURYSM [None]
  - BLOOD ALKALINE PHOSPHATASE INCREASED [None]
  - GAMMA-GLUTAMYLTRANSFERASE INCREASED [None]
  - HAEMORRHAGIC ANAEMIA [None]
  - MUSCLE HAEMORRHAGE [None]
  - PLEURAL EFFUSION [None]
  - RENAL FAILURE ACUTE [None]
  - TRANSAMINASES INCREASED [None]
